FAERS Safety Report 9983189 (Version 1)
Quarter: 2014Q1

REPORT INFORMATION
  Report Type: Report from Study
  Country: US (occurrence: US)
  Receive Date: 20140307
  Receipt Date: 20140307
  Transmission Date: 20141002
  Serious: No
  Sender: FDA-Public Use
  Company Number: US-ABBVIE-13P-163-1177335-00

PATIENT
  Age: 48 Year
  Sex: Male
  Weight: 116.22 kg

DRUGS (10)
  1. HUMIRA [Suspect]
     Indication: PSORIASIS
     Dosage: ONCE
     Route: 058
     Dates: start: 201308, end: 201308
  2. HUMIRA [Suspect]
     Dates: start: 201308
  3. LAMOTRIGINE [Concomitant]
     Indication: BIPOLAR DISORDER
  4. ROPINIROLE [Concomitant]
     Indication: DYSKINESIA
  5. FANAPT [Concomitant]
     Indication: DEPRESSION
  6. ADVAIR [Concomitant]
     Indication: ASTHMA
  7. ZOLPIDEM [Concomitant]
     Indication: INSOMNIA
  8. PROAIR [Concomitant]
     Indication: ASTHMA
  9. GABAPENTIN [Concomitant]
     Indication: NEUROPATHY PERIPHERAL
  10. VENLAFAXINE [Concomitant]
     Indication: DEPRESSION

REACTIONS (1)
  - Weight decreased [Not Recovered/Not Resolved]
